FAERS Safety Report 4279660-4 (Version None)
Quarter: 2004Q1

REPORT INFORMATION
  Report Type: 
  Country: None (occurrence: None)
  Receive Date: 20040123
  Receipt Date: 20040113
  Transmission Date: 20041129
  Serious: No
  Sender: FDA-Public Use
  Company Number: 2003036024

PATIENT
  Age: 41 Year
  Sex: Male
  Weight: 36.2878 kg

DRUGS (2)
  1. SORTIS (ATORVASTATIN) [Suspect]
     Indication: HYPERCHOLESTEROLAEMIA
     Dosage: 20 MG (DAILY), ORAL
     Route: 048
     Dates: start: 20010901, end: 20030901
  2. LEVOTHYROXINE SODIUM [Concomitant]

REACTIONS (1)
  - ERECTILE DYSFUNCTION [None]
